FAERS Safety Report 15535862 (Version 2)
Quarter: 2018Q4

REPORT INFORMATION
  Report Type: Spontaneous
  Country: US (occurrence: US)
  Receive Date: 20181022
  Receipt Date: 20181106
  Transmission Date: 20190205
  Serious: No
  Sender: FDA-Public Use
  Company Number: US-PFIZER INC-2018004364

PATIENT
  Age: 42 Year
  Sex: Male
  Weight: 95.25 kg

DRUGS (10)
  1. MELOXICAM. [Concomitant]
     Active Substance: MELOXICAM
     Indication: HEADACHE
     Dosage: 15 MG, AS NEEDED
     Dates: start: 201701
  2. MELOXICAM. [Concomitant]
     Active Substance: MELOXICAM
     Indication: ARTHRALGIA
  3. CLOMID [Concomitant]
     Active Substance: CLOMIPHENE CITRATE
     Indication: GROWTH HORMONE DEFICIENCY
     Dosage: 25 MG, 1X/DAY
     Dates: start: 201701
  4. ROSUVASTATIN. [Concomitant]
     Active Substance: ROSUVASTATIN
     Dosage: UNK
  5. GENOTROPIN [Suspect]
     Active Substance: SOMATROPIN
     Dosage: 0.5 MG, DAILY
     Dates: start: 2017, end: 20180511
  6. HYDROCORTISONE. [Concomitant]
     Active Substance: HYDROCORTISONE
     Indication: HYPOTHALAMO-PITUITARY DISORDER
     Dosage: 2.5 MG, 1X/DAY (MORNING)
     Dates: start: 201701
  7. HYDROCORTISONE. [Concomitant]
     Active Substance: HYDROCORTISONE
     Indication: GROWTH HORMONE DEFICIENCY
  8. GENOTROPIN [Suspect]
     Active Substance: SOMATROPIN
     Indication: HYPOTHALAMO-PITUITARY DISORDER
     Dosage: 0.5 MG, 1X/DAY
     Route: 058
     Dates: start: 201701
  9. VITAMIN B12 [Concomitant]
     Active Substance: CYANOCOBALAMIN
     Indication: GROWTH HORMONE DEFICIENCY
     Dosage: 1000 UG, MONTHLY
     Route: 030
     Dates: start: 201706
  10. GENOTROPIN [Suspect]
     Active Substance: SOMATROPIN
     Dosage: 0.5 MG, DAILY
     Dates: start: 20170406

REACTIONS (3)
  - Intentional product misuse [Unknown]
  - Road traffic accident [Unknown]
  - Weight decreased [Unknown]
